FAERS Safety Report 19804607 (Version 1)
Quarter: 2021Q3

REPORT INFORMATION
  Report Type: Spontaneous
  Country: US (occurrence: US)
  Receive Date: 20210908
  Receipt Date: 20210908
  Transmission Date: 20211014
  Serious: No
  Sender: FDA-Public Use
  Company Number: US-ELI_LILLY_AND_COMPANY-US202109002520

PATIENT
  Sex: Female
  Weight: 79.82 kg

DRUGS (3)
  1. TYVASO [Suspect]
     Active Substance: TREPROSTINIL
     Indication: PULMONARY ARTERIAL HYPERTENSION
     Dosage: 10 DOSAGE FORM, QID
     Route: 055
     Dates: start: 20180412
  2. TYVASO [Suspect]
     Active Substance: TREPROSTINIL
     Dosage: 20 DOSAGE FORM, UNKNOWN
     Route: 055
     Dates: start: 20180412
  3. TADALAFIL. [Suspect]
     Active Substance: TADALAFIL
     Indication: PRODUCT USED FOR UNKNOWN INDICATION
     Dosage: UNK UNK, UNKNOWN

REACTIONS (3)
  - Hypersensitivity [Unknown]
  - Alopecia [Unknown]
  - Lacrimation increased [Unknown]
